FAERS Safety Report 7085838-7 (Version None)
Quarter: 2010Q4

REPORT INFORMATION
  Report Type: 
  Country: None (occurrence: None)
  Receive Date: 20101105
  Receipt Date: 20101027
  Transmission Date: 20110411
  Serious: Yes (Hospitalization)
  Sender: FDA-Public Use
  Company Number: BR-ROCHE-737133

PATIENT
  Sex: Female
  Weight: 50 kg

DRUGS (3)
  1. TOCILIZUMAB [Suspect]
     Indication: RHEUMATOID ARTHRITIS
     Route: 065
     Dates: start: 20100501, end: 20100601
  2. DIPYRONE [Concomitant]
     Indication: PAIN
  3. PREDNISONE [Concomitant]

REACTIONS (2)
  - DIARRHOEA [None]
  - MALAISE [None]
